FAERS Safety Report 25039041 (Version 1)
Quarter: 2025Q1

REPORT INFORMATION
  Report Type: Report from Study
  Country: PR (occurrence: PR)
  Receive Date: 20250305
  Receipt Date: 20250305
  Transmission Date: 20250408
  Serious: Yes (Other)
  Sender: ABBVIE
  Company Number: PR-ABBVIE-6154667

PATIENT
  Age: 59 Year
  Sex: Female

DRUGS (1)
  1. HUMIRA [Suspect]
     Active Substance: ADALIMUMAB
     Indication: Rheumatoid arthritis
     Dosage: CITRATE FREE
     Route: 058
     Dates: start: 20230527, end: 202502

REACTIONS (3)
  - Papilloma [Recovered/Resolved]
  - Procedural pain [Not Recovered/Not Resolved]
  - Papilloma [Not Recovered/Not Resolved]

NARRATIVE: CASE EVENT DATE: 20240501
